FAERS Safety Report 20753575 (Version 1)
Quarter: 2022Q2

REPORT INFORMATION
  Report Type: Spontaneous
  Country: US (occurrence: None)
  Receive Date: 20220426
  Receipt Date: 20220426
  Transmission Date: 20220721
  Serious: No
  Sender: FDA-Public Use
  Company Number: US-ROCHE-3012063

PATIENT
  Sex: Female

DRUGS (11)
  1. ESBRIET [Suspect]
     Active Substance: PIRFENIDONE
     Indication: Idiopathic pulmonary fibrosis
     Dosage: WITH MEALS
     Route: 048
  2. ASPIRIN [Concomitant]
     Active Substance: ASPIRIN
  3. BIOTIN [Concomitant]
     Active Substance: BIOTIN
     Dosage: 10000 MCG
  4. CLOPIDOGREL [Concomitant]
     Active Substance: CLOPIDOGREL BISULFATE
  5. ELIQUIS [Concomitant]
     Active Substance: APIXABAN
  6. LANTUS [Concomitant]
     Active Substance: INSULIN GLARGINE
     Dosage: SOL 100UNIT/ML
  7. METOPROLOL [Concomitant]
     Active Substance: METOPROLOL
  8. MUCINEX [Concomitant]
     Active Substance: GUAIFENESIN
  9. VITAMINS [Concomitant]
     Active Substance: VITAMINS
  10. TORSEMIDE [Concomitant]
     Active Substance: TORSEMIDE
  11. TYVASO [Concomitant]
     Active Substance: TREPROSTINIL
     Dosage: 0.6MG/ML

REACTIONS (1)
  - Fatigue [Not Recovered/Not Resolved]
